FAERS Safety Report 6590379-7 (Version None)
Quarter: 2010Q1

REPORT INFORMATION
  Report Type: 
  Country: None (occurrence: None)
  Receive Date: 20100219
  Receipt Date: 20100217
  Transmission Date: 20100710
  Serious: Yes (Hospitalization)
  Sender: FDA-Public Use
  Company Number: IT-SANOFI-AVENTIS-2010SA009005

PATIENT
  Age: 61 Year
  Sex: Male

DRUGS (9)
  1. TAXOTERE [Suspect]
     Route: 042
     Dates: start: 20100120, end: 20100120
  2. PRONTO PLATAMINE [Suspect]
     Route: 042
     Dates: start: 20100120, end: 20100120
  3. FLUOROURACIL [Suspect]
     Route: 042
     Dates: start: 20100120, end: 20100120
  4. ONDANSETRON [Concomitant]
     Indication: DRUG USE FOR UNKNOWN INDICATION
     Route: 042
     Dates: start: 20100120, end: 20100120
  5. TRIMETON [Concomitant]
     Indication: DRUG USE FOR UNKNOWN INDICATION
     Route: 042
     Dates: start: 20100120, end: 20100120
  6. SOLDESAM [Concomitant]
     Indication: DRUG USE FOR UNKNOWN INDICATION
     Route: 042
     Dates: start: 20100120, end: 20100120
  7. FUROSEMIDE [Concomitant]
     Indication: DRUG USE FOR UNKNOWN INDICATION
     Route: 042
     Dates: start: 20100120, end: 20100120
  8. POTASSIUM CHLORIDE [Concomitant]
     Indication: DRUG USE FOR UNKNOWN INDICATION
     Route: 042
     Dates: start: 20100102, end: 20100120
  9. MAGNESIUM SULFATE [Concomitant]
     Indication: DRUG USE FOR UNKNOWN INDICATION
     Route: 042
     Dates: start: 20100120, end: 20100120

REACTIONS (1)
  - CEREBRAL ARTERY EMBOLISM [None]
